FAERS Safety Report 16181860 (Version 1)
Quarter: 2019Q2

REPORT INFORMATION
  Report Type: Report from Study
  Country: ES (occurrence: ES)
  Receive Date: 20190410
  Receipt Date: 20190410
  Transmission Date: 20190711
  Serious: Yes (Hospitalization)
  Sender: FDA-Public Use
  Company Number: ES-EISAI MEDICAL RESEARCH-EC-2019-054638

PATIENT
  Age: 70 Year
  Sex: Male
  Weight: 83.8 kg

DRUGS (12)
  1. ADIRO [Concomitant]
     Active Substance: ASPIRIN
  2. BISOPROLOL [Concomitant]
     Active Substance: BISOPROLOL
  3. CARDURAN [Concomitant]
     Active Substance: DOXAZOSIN MESYLATE
  4. ALOPURINOL [Concomitant]
     Active Substance: ALLOPURINOL
  5. SUTRIL [Concomitant]
     Active Substance: TORSEMIDE
  6. LENVATINIB [Suspect]
     Active Substance: LENVATINIB
     Indication: RENAL CELL CARCINOMA
     Route: 048
     Dates: start: 20180614
  7. EVEROLIMUS. [Suspect]
     Active Substance: EVEROLIMUS
     Indication: RENAL CELL CARCINOMA
     Route: 048
     Dates: start: 20180614
  8. EZETIMIBE. [Concomitant]
     Active Substance: EZETIMIBE
  9. SIMVASTATINA [Concomitant]
     Active Substance: SIMVASTATIN
  10. ACOVIL [Concomitant]
     Active Substance: RAMIPRIL
  11. PANTOPRAZOLE [Concomitant]
     Active Substance: PANTOPRAZOLE
  12. LINAGLIPTINA [Concomitant]
     Active Substance: LINAGLIPTIN

REACTIONS (1)
  - Hypocalcaemia [Recovered/Resolved]

NARRATIVE: CASE EVENT DATE: 20181030
